FAERS Safety Report 25537822 (Version 2)
Quarter: 2025Q3

REPORT INFORMATION
  Report Type: Spontaneous
  Country: EU (occurrence: EU)
  Receive Date: 20250710
  Receipt Date: 20250719
  Transmission Date: 20251020
  Serious: Yes (Hospitalization, Other)
  Sender: ACCORD
  Company Number: EU-Accord-493476

PATIENT
  Age: 3 Decade
  Sex: Male

DRUGS (11)
  1. CARBOPLATIN [Suspect]
     Active Substance: CARBOPLATIN
     Indication: Neuroendocrine tumour
  2. CISPLATIN [Suspect]
     Active Substance: CISPLATIN
     Indication: Neuroendocrine tumour
     Dosage: 3 CYCLES
  3. ETOPOSIDE [Suspect]
     Active Substance: ETOPOSIDE
     Indication: Neuroendocrine tumour
  4. AMOXICILLIN\CLAVULANIC ACID [Concomitant]
     Active Substance: AMOXICILLIN\CLAVULANIC ACID
     Indication: Acute sinusitis
  5. CARBOPLATIN [Suspect]
     Active Substance: CARBOPLATIN
     Indication: Metastases to neck
  6. CISPLATIN [Suspect]
     Active Substance: CISPLATIN
     Indication: Nasal sinus cancer
  7. CISPLATIN [Suspect]
     Active Substance: CISPLATIN
     Indication: Metastases to neck
  8. CISPLATIN [Suspect]
     Active Substance: CISPLATIN
     Indication: Neuroendocrine tumour
     Dosage: CYCLES 4 AND 5
  9. ETOPOSIDE [Suspect]
     Active Substance: ETOPOSIDE
     Indication: Nasal sinus cancer
  10. ETOPOSIDE [Suspect]
     Active Substance: ETOPOSIDE
     Indication: Metastases to neck
  11. CARBOPLATIN [Suspect]
     Active Substance: CARBOPLATIN
     Indication: Nasal sinus cancer

REACTIONS (6)
  - Tinnitus [Unknown]
  - Hypophagia [Unknown]
  - Nausea [Unknown]
  - Mucosal pain [Unknown]
  - Off label use [Unknown]
  - Superficial vein thrombosis [Unknown]
